FAERS Safety Report 7711690-X (Version None)
Quarter: 2011Q3

REPORT INFORMATION
  Report Type: 
  Country: None (occurrence: None)
  Receive Date: 20110826
  Receipt Date: 20110816
  Transmission Date: 20111222
  Serious: Yes (Other)
  Sender: FDA-Public Use
  Company Number: US-JNJFOC-20110808804

PATIENT
  Sex: Female
  Weight: 87.09 kg

DRUGS (3)
  1. OXYBUTYNIN [Suspect]
     Indication: CYSTITIS INTERSTITIAL
     Route: 048
     Dates: start: 20040101, end: 20110701
  2. ELMIRON [Suspect]
     Indication: CYSTITIS INTERSTITIAL
     Route: 048
     Dates: start: 20110701
  3. TIMOLOL MALEATE [Concomitant]
     Indication: GLAUCOMA
     Route: 047

REACTIONS (5)
  - INTRAOCULAR PRESSURE INCREASED [None]
  - INSOMNIA [None]
  - NOCTURIA [None]
  - CYSTITIS [None]
  - BLADDER SPASM [None]
